FAERS Safety Report 15720284 (Version 9)
Quarter: 2019Q1

REPORT INFORMATION
  Report Type: Spontaneous
  Country: FR (occurrence: FR)
  Receive Date: 20181213
  Receipt Date: 20190311
  Transmission Date: 20190417
  Serious: Yes (Hospitalization, Other)
  Sender: FDA-Public Use
  Company Number: FR-MYLANLABS-2018M1091699

PATIENT
  Age: 43 Year
  Sex: Male

DRUGS (8)
  1. TRIFLURIDINE. [Suspect]
     Active Substance: TRIFLURIDINE
     Dosage: UNK
     Route: 047
  2. GANCICLOVIR. [Suspect]
     Active Substance: GANCICLOVIR
     Indication: OPHTHALMIC HERPES SIMPLEX
     Dosage: UNK
     Route: 061
  3. GANCICLOVIR. [Suspect]
     Active Substance: GANCICLOVIR
     Dosage: UNK (EYE GEL)
     Route: 047
  4. TRIFLURIDINE. [Suspect]
     Active Substance: TRIFLURIDINE
     Indication: OPHTHALMIC HERPES SIMPLEX
     Dosage: UNK
     Route: 061
  5. VALACICLOVIR [Suspect]
     Active Substance: VALACYCLOVIR HYDROCHLORIDE
     Indication: OPHTHALMIC HERPES SIMPLEX
     Dosage: 2 DOSAGE FORM, TID
     Route: 048
  6. VIROPTIC [Suspect]
     Active Substance: TRIFLURIDINE
     Indication: OPHTHALMIC HERPES SIMPLEX
     Dosage: UNK
     Route: 047
  7. VALACICLOVIR [Suspect]
     Active Substance: VALACYCLOVIR HYDROCHLORIDE
     Dosage: 500 MILLIGRAM, TID (500 MG, UNK (TWO TABLETS THREE TIMES A DAY)
     Route: 048
  8. ACICLOVIR [Suspect]
     Active Substance: ACYCLOVIR
     Indication: OPHTHALMIC HERPES SIMPLEX
     Dosage: UNK
     Route: 048

REACTIONS (7)
  - Therapy non-responder [Unknown]
  - Condition aggravated [Recovered/Resolved]
  - Prescribed overdose [Unknown]
  - Drug resistance [Recovered/Resolved]
  - Drug ineffective [Unknown]
  - Pathogen resistance [Recovered/Resolved]
  - Ophthalmic herpes simplex [Recovered/Resolved]
